FAERS Safety Report 25648857 (Version 1)
Quarter: 2025Q3

REPORT INFORMATION
  Report Type: Spontaneous
  Country: US (occurrence: US)
  Receive Date: 20250806
  Receipt Date: 20250806
  Transmission Date: 20251020
  Serious: Yes (Hospitalization)
  Sender: MYLAN
  Company Number: US-MYLANLABS-2025M1064824

PATIENT
  Age: 69 Year
  Sex: Male

DRUGS (7)
  1. MYCOPHENOLATE MOFETIL [Suspect]
     Active Substance: MYCOPHENOLATE MOFETIL
     Indication: Immunosuppressant drug therapy
     Dosage: 540 MILLIGRAM, BID
  2. TACROLIMUS [Suspect]
     Active Substance: TACROLIMUS
     Indication: Immunosuppressant drug therapy
     Dosage: 2.5 MILLIGRAM, AM (2.5 MG IN THE MORNING)
  3. TACROLIMUS [Suspect]
     Active Substance: TACROLIMUS
     Dosage: 2 MILLIGRAM, QD (2 MG IN THE EVENING)
  4. PREDNISONE [Suspect]
     Active Substance: PREDNISONE
     Indication: Immunosuppressant drug therapy
     Dosage: 5 MILLIGRAM, QD, THERAPY CONTINUED
  5. ISAVUCONAZONIUM SULFATE [Concomitant]
     Active Substance: ISAVUCONAZONIUM SULFATE
     Indication: Infection prophylaxis
  6. COTRIMOXAZOLE [Concomitant]
     Active Substance: SULFAMETHOXAZOLE\TRIMETHOPRIM
     Indication: Infection prophylaxis
  7. ATOVAQUONE [Concomitant]
     Active Substance: ATOVAQUONE
     Indication: Infection prophylaxis

REACTIONS (2)
  - Kaposi^s sarcoma [Recovering/Resolving]
  - Human herpesvirus 8 infection [Recovering/Resolving]
